FAERS Safety Report 24650001 (Version 2)
Quarter: 2024Q4

REPORT INFORMATION
  Report Type: Report from Study
  Country: GB (occurrence: GB)
  Receive Date: 20241122
  Receipt Date: 20241211
  Transmission Date: 20250115
  Serious: Yes (Hospitalization)
  Sender: ABBVIE
  Company Number: GB-ABBVIE-5988044

PATIENT
  Age: 50 Year
  Sex: Female
  Weight: 59 kg

DRUGS (6)
  1. UPADACITINIB [Suspect]
     Active Substance: UPADACITINIB
     Indication: Colitis ulcerative
     Route: 048
     Dates: start: 20231207, end: 20240201
  2. UPADACITINIB [Suspect]
     Active Substance: UPADACITINIB
     Indication: Colitis ulcerative
     Route: 048
     Dates: start: 20240201, end: 20240916
  3. UPADACITINIB [Suspect]
     Active Substance: UPADACITINIB
     Indication: Colitis ulcerative
     Route: 048
     Dates: start: 20240917, end: 20241030
  4. PENTASA [Concomitant]
     Active Substance: MESALAMINE
     Indication: Colitis ulcerative
     Dosage: PENTASA ENEMA
     Route: 054
     Dates: start: 20210930
  5. PENTASA [Concomitant]
     Active Substance: MESALAMINE
     Indication: Colitis ulcerative
     Dosage: PENTASA SUPPOSITORY
     Route: 054
     Dates: start: 20210930
  6. MESALAMINE [Concomitant]
     Active Substance: MESALAMINE
     Indication: Colitis ulcerative
     Route: 048
     Dates: start: 20200110

REACTIONS (2)
  - Periorbital cellulitis [Not Recovered/Not Resolved]
  - Herpes zoster [Unknown]

NARRATIVE: CASE EVENT DATE: 20241030
